FAERS Safety Report 17579956 (Version 2)
Quarter: 2021Q1

REPORT INFORMATION
  Report Type: Spontaneous
  Country: US (occurrence: US)
  Receive Date: 20200325
  Receipt Date: 20210203
  Transmission Date: 20210419
  Serious: Yes (Other)
  Sender: FDA-Public Use
  Company Number: US-BAYER-2020-050359

PATIENT
  Sex: Female

DRUGS (1)
  1. SKYLA [Suspect]
     Active Substance: LEVONORGESTREL
     Indication: CONTRACEPTION
     Dosage: 14?G PER DAY CONTINUOUSLY
     Route: 015
     Dates: start: 201903

REACTIONS (3)
  - Genital haemorrhage [None]
  - Bacterial vaginosis [None]
  - Vulvovaginal discomfort [None]
